FAERS Safety Report 4340319-6 (Version None)
Quarter: 2004Q2

REPORT INFORMATION
  Report Type: 
  Country: None (occurrence: None)
  Receive Date: 20040412
  Receipt Date: 20040402
  Transmission Date: 20050107
  Serious: Yes (Death, Life-Threatening)
  Sender: FDA-Public Use
  Company Number: 2004-04-0055

PATIENT
  Age: 63 Year
  Sex: Male

DRUGS (2)
  1. TEMODAL [Suspect]
     Indication: GLIOBLASTOMA
     Dosage: 350 MG QD ORAL
     Route: 048
     Dates: start: 20040201, end: 20040201
  2. CORTICOSTEROID NOS [Concomitant]

REACTIONS (3)
  - ANAEMIA [None]
  - BONE MARROW DEPRESSION [None]
  - HAEMORRHAGE [None]
